FAERS Safety Report 21778534 (Version 1)
Quarter: 2022Q4

REPORT INFORMATION
  Report Type: Report from Study
  Country: US (occurrence: US)
  Receive Date: 20221226
  Receipt Date: 20221226
  Transmission Date: 20230112
  Serious: Yes (Other)
  Sender: FDA-Public Use
  Company Number: US-EXELIXIS-XL18422059122

PATIENT

DRUGS (3)
  1. CABOZANTINIB [Suspect]
     Active Substance: CABOZANTINIB
     Indication: Transitional cell carcinoma
     Dosage: 40 MG, QD (CYCLE 1-4) CYCLE OF 21 DAYS
     Route: 048
     Dates: start: 20210312
  2. IPILIMUMAB [Suspect]
     Active Substance: IPILIMUMAB
     Indication: Transitional cell carcinoma
     Dosage: 1 MG/KG ON DAY 1 (CYCLE 1-4) CYCLE OF 21 DAYS
     Route: 042
     Dates: start: 20210312
  3. NIVOLUMAB [Suspect]
     Active Substance: NIVOLUMAB
     Indication: Transitional cell carcinoma
     Dosage: 3 MG/KG ON DAY 1 (CYCLE 1-4) CYCLE OF 21 DAYS
     Route: 042
     Dates: start: 20210312

REACTIONS (3)
  - Pruritus [Recovered/Resolved]
  - Rash maculo-papular [Recovering/Resolving]
  - Stomatitis [Recovered/Resolved]

NARRATIVE: CASE EVENT DATE: 20210413
